FAERS Safety Report 4625333-5 (Version None)
Quarter: 2005Q2

REPORT INFORMATION
  Report Type: 
  Country: None (occurrence: None)
  Receive Date: 20050401
  Receipt Date: 20050325
  Transmission Date: 20051028
  Serious: Yes (Other)
  Sender: FDA-Public Use
  Company Number: US-GLAXOSMITHKLINE-A0551303A

PATIENT
  Sex: Female

DRUGS (5)
  1. WELLBUTRIN [Suspect]
     Indication: DEPRESSION
     Dosage: 225MG TWICE PER DAY
     Route: 048
     Dates: start: 20030101
  2. PREMARIN [Concomitant]
  3. MAXALT [Concomitant]
  4. FLEXERIL [Concomitant]
  5. TEMAZEPAM [Concomitant]

REACTIONS (4)
  - DEAFNESS [None]
  - MEDICATION ERROR [None]
  - MENIERE'S DISEASE [None]
  - OTOSCLEROSIS [None]
